FAERS Safety Report 22153018 (Version 2)
Quarter: 2023Q2

REPORT INFORMATION
  Report Type: Spontaneous
  Country: US (occurrence: US)
  Receive Date: 20230329
  Receipt Date: 20230417
  Transmission Date: 20230721
  Serious: No
  Sender: FDA-Public Use
  Company Number: US-BAUSCH-BL-2023-004751

PATIENT
  Sex: Female

DRUGS (1)
  1. XIFAXAN [Suspect]
     Active Substance: RIFAXIMIN
     Indication: Irritable bowel syndrome
     Route: 065

REACTIONS (2)
  - Drug ineffective [Unknown]
  - Product use issue [Unknown]
